FAERS Safety Report 5928080-2 (Version None)
Quarter: 2008Q4

REPORT INFORMATION
  Report Type: 
  Country: None (occurrence: None)
  Receive Date: 20081023
  Receipt Date: 20081022
  Transmission Date: 20090506
  Serious: Yes (Other)
  Sender: FDA-Public Use
  Company Number: B0540354A

PATIENT
  Age: 9 Year
  Sex: Male

DRUGS (1)
  1. LAMICTIN [Suspect]
     Dosage: 75MG TWICE PER DAY
     Route: 048
     Dates: start: 20071203, end: 20081009

REACTIONS (9)
  - APHASIA [None]
  - DROOLING [None]
  - ECZEMA [None]
  - ILL-DEFINED DISORDER [None]
  - NAUSEA [None]
  - SWELLING FACE [None]
  - SWOLLEN TONGUE [None]
  - TONGUE DISORDER [None]
  - VOMITING [None]
